FAERS Safety Report 5902936-9 (Version None)
Quarter: 2008Q3

REPORT INFORMATION
  Report Type: 
  Country: None (occurrence: None)
  Receive Date: 20080930
  Receipt Date: 20080923
  Transmission Date: 20090109
  Serious: Yes (Death)
  Sender: FDA-Public Use
  Company Number: US-BAYER-200813858BCC

PATIENT
  Sex: Female

DRUGS (3)
  1. ASPIRIN [Suspect]
     Indication: ATRIAL FIBRILLATION
  2. LOVENOX [Suspect]
     Indication: INTERNATIONAL NORMALISED RATIO DECREASED
     Dates: start: 20080801
  3. COUMADIN [Suspect]
     Indication: INTERNATIONAL NORMALISED RATIO DECREASED
     Dates: end: 20080801

REACTIONS (1)
  - RETROPERITONEAL HAEMORRHAGE [None]
